FAERS Safety Report 7608332-0 (Version None)
Quarter: 2011Q3

REPORT INFORMATION
  Report Type: 
  Country: None (occurrence: None)
  Receive Date: 20110714
  Receipt Date: 20110629
  Transmission Date: 20111222
  Serious: No
  Sender: FDA-Public Use
  Company Number: US-B.I. PHARMACEUTICALS,INC./RIDGEFIELD-2011-BP-14778BP

PATIENT
  Age: 76 Year
  Sex: Male
  Weight: 82.55 kg

DRUGS (5)
  1. ASPIRIN [Concomitant]
     Dosage: 81 MG
  2. CRESTOR [Concomitant]
     Dosage: 10 NR
  3. PRADAXA [Suspect]
     Dosage: 300 MG
     Route: 048
     Dates: start: 20110513, end: 20110603
  4. PRADAXA [Suspect]
     Dosage: 150 MG
     Dates: start: 20110609, end: 20110612
  5. LOTREL [Concomitant]

REACTIONS (4)
  - ASTHENIA [None]
  - VISION BLURRED [None]
  - HYPERTENSION [None]
  - DIZZINESS [None]
